FAERS Safety Report 9409807 (Version 2)
Quarter: 2013Q3

REPORT INFORMATION
  Report Type: Spontaneous
  Country: FR (occurrence: FR)
  Receive Date: 20130719
  Receipt Date: 20130726
  Transmission Date: 20140515
  Serious: Yes (Hospitalization)
  Sender: FDA-Public Use
  Company Number: FR-SANOFI-AVENTIS-2013SA070969

PATIENT
  Age: 54 Year
  Sex: Male

DRUGS (3)
  1. RIFADINE [Suspect]
     Indication: BACTERAEMIA
     Route: 042
     Dates: start: 20130624, end: 20130624
  2. CALCIPARINE [Suspect]
     Indication: PULMONARY EMBOLISM
     Route: 058
     Dates: start: 20130623, end: 20130624
  3. CLAMOXYL [Concomitant]
     Indication: BACTERAEMIA
     Route: 042
     Dates: start: 20130624

REACTIONS (5)
  - Cholestasis [Recovered/Resolved]
  - Renal failure [Recovered/Resolved with Sequelae]
  - Blood creatinine increased [Recovered/Resolved with Sequelae]
  - Creatinine renal clearance decreased [Recovered/Resolved with Sequelae]
  - Thrombocytopenia [Recovered/Resolved]
